FAERS Safety Report 6661802-4 (Version None)
Quarter: 2010Q1

REPORT INFORMATION
  Report Type: 
  Country: None (occurrence: None)
  Receive Date: 20100331
  Receipt Date: 20090707
  Transmission Date: 20100710
  Serious: No
  Sender: FDA-Public Use
  Company Number: US-BRISTOL-MYERS SQUIBB COMPANY-14696520

PATIENT
  Age: 62 Year
  Sex: Male

DRUGS (2)
  1. ERBITUX [Suspect]
     Indication: COLON CANCER STAGE IV
     Dosage: LOT # 08C00179;LAST DOSE ON 12JUN09
     Route: 042
     Dates: start: 20090409
  2. IRINOTECAN HCL [Suspect]
     Indication: COLON CANCER STAGE IV

REACTIONS (2)
  - DIARRHOEA [None]
  - HYPOMAGNESAEMIA [None]
